FAERS Safety Report 8067877-2 (Version None)
Quarter: 2012Q1

REPORT INFORMATION
  Report Type: 
  Country: None (occurrence: None)
  Receive Date: 20120124
  Receipt Date: 20110829
  Transmission Date: 20120608
  Serious: No
  Sender: FDA-Public Use
  Company Number: US-AMGEN-USASP2011044447

PATIENT
  Sex: Female

DRUGS (1)
  1. PROLIA [Suspect]
     Indication: METASTASES TO BONE
     Dates: start: 20110301

REACTIONS (2)
  - PRURITUS [None]
  - JAW DISORDER [None]
